FAERS Safety Report 6355997-X (Version None)
Quarter: 2009Q3

REPORT INFORMATION
  Report Type: 
  Country: None (occurrence: None)
  Receive Date: 20090914
  Receipt Date: 20090914
  Transmission Date: 20100115
  Serious: Yes (Hospitalization)
  Sender: FDA-Public Use
  Company Number: None

PATIENT
  Age: 65 Year
  Sex: Female
  Weight: 78.5 kg

DRUGS (1)
  1. METHIMAZOLE [Suspect]
     Indication: HYPERTHYROIDISM
     Dosage: 5 MG BID PO
     Route: 048

REACTIONS (7)
  - ERYTHEMA [None]
  - FEELING HOT [None]
  - HAEMATOCRIT DECREASED [None]
  - HAEMOGLOBIN DECREASED [None]
  - JOINT SWELLING [None]
  - LEUKOCYTOSIS [None]
  - OEDEMA PERIPHERAL [None]
